FAERS Safety Report 6499894-8 (Version None)
Quarter: 2009Q4

REPORT INFORMATION
  Report Type: 
  Country: None (occurrence: None)
  Receive Date: 20091214
  Receipt Date: 20091214
  Transmission Date: 20100525
  Serious: Yes (Other)
  Sender: FDA-Public Use
  Company Number: None

PATIENT
  Sex: Male

DRUGS (2)
  1. DOXYCYCLINE [Suspect]
  2. SULFAMETHOXAZOLE AND TRIMETHOPRIM [Suspect]

REACTIONS (1)
  - STEVENS-JOHNSON SYNDROME [None]
